FAERS Safety Report 7213249-X (Version None)
Quarter: 2011Q1

REPORT INFORMATION
  Report Type: 
  Country: None (occurrence: None)
  Receive Date: 20110106
  Receipt Date: 20101124
  Transmission Date: 20110831
  Serious: Yes (Hospitalization)
  Sender: FDA-Public Use
  Company Number: US-BAYER-201029828NA

PATIENT
  Sex: Female
  Weight: 83 kg

DRUGS (6)
  1. UNCODEABLE ^UNCLASSIFIABLE^ [Concomitant]
  2. MOTRIN [Concomitant]
     Indication: MIGRAINE
     Dosage: UNK
     Dates: start: 20050104
  3. YAZ [Suspect]
     Indication: ACNE
     Dosage: UNK
     Dates: start: 20070101
  4. YAZ [Suspect]
     Indication: CONTRACEPTION
  5. YASMIN [Suspect]
     Indication: ACNE
  6. OCELLA [Suspect]

REACTIONS (3)
  - ABDOMINAL PAIN [None]
  - NEPHROLITHIASIS [None]
  - CHOLELITHIASIS [None]
